FAERS Safety Report 13198771 (Version 1)
Quarter: 2017Q1

REPORT INFORMATION
  Report Type: Spontaneous
  Country: US (occurrence: US)
  Receive Date: 20170208
  Receipt Date: 20170208
  Transmission Date: 20170428
  Serious: No
  Sender: FDA-Public Use
  Company Number: US-AMGEN-USASP2017011911

PATIENT
  Age: 70 Year
  Sex: Male

DRUGS (4)
  1. NEULASTA [Suspect]
     Active Substance: PEGFILGRASTIM
     Indication: SMALL CELL LUNG CANCER
     Dosage: 6 MG, UNK
     Route: 065
  2. DILTIAZEM. [Concomitant]
     Active Substance: DILTIAZEM
     Dosage: 120 MG, QD (EVERY EVENING)
  3. AMOXI [Concomitant]
     Active Substance: AMOXICILLIN
     Dosage: 875 MG/12
  4. PREDNISONE. [Concomitant]
     Active Substance: PREDNISONE
     Dosage: UNK

REACTIONS (2)
  - Blood urine present [Not Recovered/Not Resolved]
  - Renal pain [Not Recovered/Not Resolved]

NARRATIVE: CASE EVENT DATE: 20170119
